FAERS Safety Report 9234075 (Version 1)
Quarter: 2013Q2

REPORT INFORMATION
  Report Type: Spontaneous
  Country: US (occurrence: US)
  Receive Date: 20130416
  Receipt Date: 20130416
  Transmission Date: 20140414
  Serious: Yes (Hospitalization, Other)
  Sender: FDA-Public Use
  Company Number: US-JNJFOC-20120308819

PATIENT
  Age: 40 Year
  Sex: Male

DRUGS (37)
  1. FENTANYL [Suspect]
     Indication: ABDOMINAL PAIN
     Route: 062
  2. PAZOPANIB [Suspect]
     Indication: METASTATIC RENAL CELL CARCINOMA
     Route: 048
     Dates: start: 20130224
  3. PAZOPANIB [Suspect]
     Indication: METASTATIC RENAL CELL CARCINOMA
     Route: 048
     Dates: start: 20120224, end: 20130222
  4. PAZOPANIB [Suspect]
     Indication: METASTATIC RENAL CELL CARCINOMA
     Route: 048
     Dates: start: 20120221, end: 20120223
  5. UNKNOWN MEDICATION [Suspect]
     Indication: METASTATIC RENAL CELL CARCINOMA
     Route: 042
     Dates: start: 20120221, end: 20120222
  6. CYMBALTA [Concomitant]
     Route: 065
  7. LEVOTHYROXINE SODIUM [Concomitant]
     Route: 065
  8. PROTONIX [Concomitant]
     Route: 065
  9. PHENERGAN [Concomitant]
     Route: 065
  10. MECLIZINE [Concomitant]
     Route: 065
  11. MIRALAX [Concomitant]
     Route: 065
  12. OXYCONTIN [Concomitant]
     Route: 065
  13. NORMAL SALINE [Concomitant]
     Route: 065
  14. HYOSCYAMINE [Concomitant]
     Route: 065
  15. ONDANSETRON [Concomitant]
     Route: 065
  16. POLYETHYLENE GLYCOL [Concomitant]
     Route: 065
  17. ATIVAN [Concomitant]
     Route: 065
  18. MORPHINE [Concomitant]
     Route: 065
  19. PEPCID [Concomitant]
     Route: 065
  20. METRONIDAZOLE [Concomitant]
     Route: 065
  21. CIPROFLOXACIN [Concomitant]
     Route: 065
  22. SENOKOT [Concomitant]
     Route: 065
  23. PANTOPRAZOLE [Concomitant]
     Route: 065
  24. MORNIFLUMATE [Concomitant]
     Route: 065
  25. TYLENOL [Concomitant]
     Route: 065
  26. BENADRYL [Concomitant]
     Route: 065
  27. OXYCODONE [Concomitant]
     Route: 065
  28. MOXIFLOXACIN [Concomitant]
     Route: 065
  29. FLAGYL [Concomitant]
     Route: 065
  30. SYNTHROID [Concomitant]
     Route: 065
  31. LISINOPRIL [Concomitant]
     Route: 065
  32. CLONIDINE [Concomitant]
     Route: 065
  33. AMOXICILLIN SODIUM, CLAVULANATE POTASSIUM [Concomitant]
     Route: 065
  34. CIPRO [Concomitant]
     Route: 065
  35. LEVSIN [Concomitant]
     Route: 065
  36. SENNA [Concomitant]
     Route: 065
  37. ZOFRAN [Concomitant]
     Route: 065

REACTIONS (11)
  - Syncope [Recovering/Resolving]
  - Abdominal pain [Recovering/Resolving]
  - Orthostatic hypotension [Recovering/Resolving]
  - Fall [Unknown]
  - Pneumonia [Unknown]
  - Head injury [Unknown]
  - Malaise [Unknown]
  - Decreased appetite [Recovering/Resolving]
  - Sinus bradycardia [Unknown]
  - Nausea [Recovered/Resolved]
  - Vomiting [Recovered/Resolved]
